FAERS Safety Report 5271913-6 (Version None)
Quarter: 2007Q1

REPORT INFORMATION
  Report Type: 
  Country: None (occurrence: None)
  Receive Date: 20070319
  Receipt Date: 20070313
  Transmission Date: 20070707
  Serious: Yes (Death, Life-Threatening, Hospitalization)
  Sender: FDA-Public Use
  Company Number: 163-C5013-07021354

PATIENT
  Age: 89 Year
  Sex: Male
  Weight: 84 kg

DRUGS (25)
  1. CC-5013 (LENALIDOMIDE) (CAPSULES0 [Suspect]
     Indication: MYELODYSPLASTIC SYNDROME
     Dosage: 5 MG, M, W, F, ORAL
     Route: 048
     Dates: start: 20040129, end: 20070226
  2. COLACE (DOCUSATE SODIUM) [Concomitant]
  3. QUESTRAN [Concomitant]
  4. LORTAB [Concomitant]
  5. INDERAL [Concomitant]
  6. DILANTIN (PHENYTOIN SODIUM) (TABLETS) [Concomitant]
  7. PROTONIX [Concomitant]
  8. NIACIN [Concomitant]
  9. ALTACE [Concomitant]
  10. MILK OF MAGNESIA (MAGNESIA HYDROXIDE) [Concomitant]
  11. BISACODYL (BISACODYL) (SUPPOSITORY) [Concomitant]
  12. FLEET ENEMA (FLEET ENEMA) (ENEMA) [Concomitant]
     Dosage: ZITHROMAX (ZITHROMYCIN) (CAPSULES)
  13. AMOXICILLIN [Concomitant]
  14. TESSALON (BENZONATATE) (CAPSULES) [Concomitant]
  15. TYLENOL (PARACETAMOL) (TABLETS) [Concomitant]
  16. SODIUM CHLORIDE 0.9% [Concomitant]
  17. DOPAMINE (DOPAMINE) (INJECTION) [Concomitant]
  18. VANCOMYCIN [Concomitant]
  19. HEPARIN [Concomitant]
  20. FOSPHENYTOIN (FOSPHENYTOIN) [Concomitant]
  21. IPRATROPIUM (IPRATROPIUM) (SOLUTION) [Concomitant]
  22. ALBUTEROL (SALBUTAMOL) (SOLUTION) [Concomitant]
  23. ZOSYN (PUP/TAZO) [Concomitant]
  24. ACCUZYME (ACCUZYME) (OINTMENT) [Concomitant]
  25. ZITHROMAX (AZITHROMYCIN) CAPSULES [Concomitant]

REACTIONS (9)
  - ATELECTASIS [None]
  - DEPRESSED LEVEL OF CONSCIOUSNESS [None]
  - GRAND MAL CONVULSION [None]
  - HEART RATE DECREASED [None]
  - HYPOTENSION [None]
  - MYOCARDIAL INFARCTION [None]
  - PNEUMONIA [None]
  - SCAR [None]
  - SEPSIS [None]
